FAERS Safety Report 22253763 (Version 1)
Quarter: 2023Q2

REPORT INFORMATION
  Report Type: Spontaneous
  Country: HR (occurrence: HR)
  Receive Date: 20230426
  Receipt Date: 20230426
  Transmission Date: 20230722
  Serious: Yes (Hospitalization, Other)
  Sender: FDA-Public Use
  Company Number: HR-BoehringerIngelheim-2023-BI-233338

PATIENT
  Age: 79 Year
  Sex: Male

DRUGS (3)
  1. OFEV [Suspect]
     Active Substance: NINTEDANIB
     Indication: Creatinine renal clearance decreased
     Dosage: IT IS INSERTED THAT DRUG WAS REDUCED BUT AS IT IS SEEN FROM NARRATIVE FIRST IT WAS REDUCED THEN WITH
     Dates: start: 201911, end: 202208
  2. OFEV [Suspect]
     Active Substance: NINTEDANIB
     Dates: start: 202208, end: 202212
  3. OFEV [Suspect]
     Active Substance: NINTEDANIB
     Dates: start: 202301

REACTIONS (5)
  - Incarcerated inguinal hernia [Recovered/Resolved]
  - Diarrhoea [Recovered/Resolved]
  - Weight decreased [Unknown]
  - Dyspnoea [Unknown]
  - Pulmonary function test decreased [Unknown]

NARRATIVE: CASE EVENT DATE: 20210801
